FAERS Safety Report 21116811 (Version 2)
Quarter: 2022Q4

REPORT INFORMATION
  Report Type: Spontaneous
  Country: US (occurrence: US)
  Receive Date: 20220722
  Receipt Date: 20221129
  Transmission Date: 20230112
  Serious: Yes (Other)
  Sender: FDA-Public Use
  Company Number: US-SPECGX-T202201589

PATIENT
  Age: 62 Year
  Sex: Male

DRUGS (3)
  1. DEXTROAMPHET SACCHARAT, AMPHET ASPARTATE, DEXTROAMPHET SULFATE AND AMP [Suspect]
     Active Substance: AMPHETAMINE ASPARTATE\AMPHETAMINE SULFATE\DEXTROAMPHETAMINE SACCHARATE\DEXTROAMPHETAMINE SULFATE
     Indication: Attention deficit hyperactivity disorder
     Dosage: 120 MILLIGRAM, QD
     Route: 065
  2. DEXTROAMPHET SACCHARAT, AMPHET ASPARTATE, DEXTROAMPHET SULFATE AND AMP [Suspect]
     Active Substance: AMPHETAMINE ASPARTATE\AMPHETAMINE SULFATE\DEXTROAMPHETAMINE SACCHARATE\DEXTROAMPHETAMINE SULFATE
     Dosage: 60 MILLIGRAM, QD
     Route: 065
  3. ARMODAFINIL [Suspect]
     Active Substance: ARMODAFINIL
     Indication: Somnolence
     Dosage: 250 MILLIGRAM, QD
     Route: 065

REACTIONS (9)
  - Skin exfoliation [Recovering/Resolving]
  - Dermatitis contact [Recovered/Resolved]
  - Delusion of parasitosis [Recovered/Resolved]
  - Exfoliative rash [Recovering/Resolving]
  - Overdose [Unknown]
  - Eczema [Unknown]
  - Erythema [Unknown]
  - Somnolence [Unknown]
  - Skin abrasion [Recovering/Resolving]
